FAERS Safety Report 9452679 (Version 2)
Quarter: 2013Q3

REPORT INFORMATION
  Report Type: Spontaneous
  Country: US (occurrence: US)
  Receive Date: 20130812
  Receipt Date: 20130911
  Transmission Date: 20140515
  Serious: No
  Sender: FDA-Public Use
  Company Number: US-PFIZER INC-2013228309

PATIENT
  Age: 58 Year
  Sex: Female

DRUGS (1)
  1. PREMARIN [Suspect]
     Dosage: UNK
     Route: 067
     Dates: start: 201011

REACTIONS (4)
  - Breast calcifications [Unknown]
  - Gallbladder disorder [Unknown]
  - Drug effect incomplete [Unknown]
  - Breast tenderness [Unknown]
